FAERS Safety Report 5280261-X (Version None)
Quarter: 2007Q1

REPORT INFORMATION
  Report Type: 
  Country: None (occurrence: None)
  Receive Date: 20070329
  Receipt Date: 20070326
  Transmission Date: 20070707
  Serious: Yes (Hospitalization)
  Sender: FDA-Public Use
  Company Number: US-GLAXOSMITHKLINE-A0640818B

PATIENT
  Age: 64 Year
  Sex: Female
  Weight: 95.7 kg

DRUGS (4)
  1. LAPATINIB [Suspect]
     Dosage: 1250MG PER DAY
     Route: 048
     Dates: start: 20061123
  2. CAPECITABINE [Suspect]
     Dosage: 1500MG PER DAY
     Route: 048
     Dates: start: 20061123
  3. KEPPRA [Concomitant]
  4. COUMADIN [Concomitant]

REACTIONS (1)
  - CONVULSION [None]
